FAERS Safety Report 7833513-0 (Version None)
Quarter: 2011Q4

REPORT INFORMATION
  Report Type: 
  Country: None (occurrence: None)
  Receive Date: 20111024
  Receipt Date: 20111011
  Transmission Date: 20120403
  Serious: Yes (Hospitalization)
  Sender: FDA-Public Use
  Company Number: US-BAYER-2011-009760

PATIENT
  Age: 17 Year
  Sex: Female
  Weight: 68.027 kg

DRUGS (3)
  1. DROSPIRENONE AND ETHINYL ESTRADIOL [Suspect]
     Indication: ACNE
     Dosage: UNK
     Dates: start: 20080801, end: 20090101
  2. CLINDAMYCIN [Concomitant]
     Indication: ACNE
     Dosage: 1 %, UNK
     Route: 061
  3. YASMIN [Suspect]
     Indication: ACNE
     Dosage: UNK
     Dates: start: 20080401, end: 20080701

REACTIONS (2)
  - PULMONARY EMBOLISM [None]
  - PAIN [None]
